FAERS Safety Report 21434510 (Version 1)
Quarter: 2022Q4

REPORT INFORMATION
  Report Type: Spontaneous
  Country: IN (occurrence: IN)
  Receive Date: 20221010
  Receipt Date: 20221010
  Transmission Date: 20230112
  Serious: Yes (Hospitalization, Other)
  Sender: FDA-Public Use
  Company Number: IN-CIPLA LTD.-2022IN05920

PATIENT
  Age: 23 Year
  Sex: Female

DRUGS (2)
  1. GLIMEPIRIDE [Suspect]
     Active Substance: GLIMEPIRIDE
     Dosage: 32 MG
     Route: 048
  2. METFORMIN [Suspect]
     Active Substance: METFORMIN HYDROCHLORIDE
     Dosage: 8 G
     Route: 048

REACTIONS (7)
  - Hypoxia [Unknown]
  - Pyrexia [Unknown]
  - Overdose [Unknown]
  - Generalised tonic-clonic seizure [Unknown]
  - Loss of consciousness [Unknown]
  - Hypoglycaemic seizure [Unknown]
  - Hypoglycaemia [Unknown]
